FAERS Safety Report 6017000-0 (Version None)
Quarter: 2008Q4

REPORT INFORMATION
  Report Type: 
  Country: None (occurrence: None)
  Receive Date: 20081223
  Receipt Date: 20081209
  Transmission Date: 20090506
  Serious: Yes (Other)
  Sender: FDA-Public Use
  Company Number: CN-ROCHE-602334

PATIENT
  Sex: Female

DRUGS (3)
  1. CAPECITABINE [Suspect]
     Dosage: DOSE REPORTED AS 2G.M2 TWICE DAILY WAS APPLIED FROM DAYS 1 TO DAY 14
     Route: 048
  2. DOCETAXEL [Suspect]
     Dosage: ON DAY 1, 8 AND 15
     Route: 065
  3. DEXAMETHASONE [Concomitant]
     Indication: ALLERGY PROPHYLAXIS
     Dosage: ADMINISTERED 3 TO 4 DAYS BEFORE DOCETAXEL
     Route: 065

REACTIONS (1)
  - INTESTINAL OBSTRUCTION [None]
